FAERS Safety Report 7192346-1 (Version None)
Quarter: 2010Q4

REPORT INFORMATION
  Report Type: 
  Country: None (occurrence: None)
  Receive Date: 20101223
  Receipt Date: 20101209
  Transmission Date: 20110411
  Serious: Yes (Other)
  Sender: FDA-Public Use
  Company Number: US-BAYER-2010-004619

PATIENT
  Sex: Female

DRUGS (2)
  1. YAZ [Suspect]
     Dosage: UNK
     Dates: end: 20090101
  2. YASMIN [Suspect]
     Dosage: UNK
     Dates: start: 20040101

REACTIONS (6)
  - ANXIETY [None]
  - CHOLECYSTECTOMY [None]
  - CHOLELITHIASIS [None]
  - GASTROINTESTINAL DISORDER [None]
  - MENTAL DISORDER [None]
  - POST CHOLECYSTECTOMY SYNDROME [None]
